FAERS Safety Report 4925340-9 (Version None)
Quarter: 2006Q1

REPORT INFORMATION
  Report Type: 
  Country: None (occurrence: None)
  Receive Date: 20060228
  Receipt Date: 20060217
  Transmission Date: 20060701
  Serious: Yes (Hospitalization, Other)
  Sender: FDA-Public Use
  Company Number: PHBS2006BR02850

PATIENT
  Age: 9 Month
  Sex: Female
  Weight: 5 kg

DRUGS (2)
  1. ZELMAC [Suspect]
     Route: 064
  2. VITAMINS [Concomitant]

REACTIONS (4)
  - CARDIAC MURMUR [None]
  - CARDIAC OPERATION [None]
  - DRUG EXPOSURE DURING PREGNANCY [None]
  - PREMATURE BABY [None]
